FAERS Safety Report 12899287 (Version 1)
Quarter: 2016Q4

REPORT INFORMATION
  Report Type: Spontaneous
  Country: US (occurrence: US)
  Receive Date: 20161101
  Receipt Date: 20161101
  Transmission Date: 20170207
  Serious: No
  Sender: FDA-Public Use
  Company Number: US-CELGENEUS-USA-2016107626

PATIENT
  Sex: Male

DRUGS (1)
  1. OTEZLA [Suspect]
     Active Substance: APREMILAST
     Indication: PRODUCT USED FOR UNKNOWN INDICATION
     Dosage: DAY 1: 10MG IN AM?DAY 2: 10 MG IN AM AND PM?DAY 3: 10MG
     Route: 048
     Dates: start: 20160830

REACTIONS (1)
  - Adverse drug reaction [Unknown]
